FAERS Safety Report 8333457-4 (Version None)
Quarter: 2012Q2

REPORT INFORMATION
  Report Type: 
  Country: None (occurrence: None)
  Receive Date: 20120503
  Receipt Date: 20120425
  Transmission Date: 20120825
  Serious: Yes (Hospitalization, Other)
  Sender: FDA-Public Use
  Company Number: US-NOVOPROD-350200

PATIENT
  Age: 53 Year
  Sex: Female
  Weight: 123.81 kg

DRUGS (2)
  1. VICTOZA [Suspect]
     Indication: TYPE 2 DIABETES MELLITUS
     Dosage: 1.8 MG, QD
     Route: 058
     Dates: start: 20110812, end: 20120109
  2. SAPHRIS [Concomitant]
     Indication: AFFECTIVE DISORDER
     Dosage: UNK
     Route: 048

REACTIONS (4)
  - VOMITING [None]
  - ABDOMINAL PAIN [None]
  - NAUSEA [None]
  - VIRAL INFECTION [None]
